FAERS Safety Report 7541283-9 (Version None)
Quarter: 2011Q2

REPORT INFORMATION
  Report Type: 
  Country: None (occurrence: None)
  Receive Date: 20110610
  Receipt Date: 20110606
  Transmission Date: 20111010
  Serious: Yes (Other)
  Sender: FDA-Public Use
  Company Number: US-RB-028121-11

PATIENT
  Age: 30 Year
  Sex: Female

DRUGS (3)
  1. SUBOXONE [Suspect]
     Indication: DRUG DEPENDENCE
     Route: 060
     Dates: start: 20110101
  2. KLONOPIN [Suspect]
     Dosage: DOSING INFORMATION UNKNOWN
     Route: 048
     Dates: start: 20110101
  3. KLONOPIN [Suspect]
     Indication: ANXIETY
     Dosage: DOSING INFORMATION UNKNOWN
     Route: 048
     Dates: start: 20110101, end: 20110101

REACTIONS (4)
  - DIZZINESS [None]
  - HYPERSOMNIA [None]
  - HEADACHE [None]
  - DYSARTHRIA [None]
